FAERS Safety Report 5097027-6 (Version None)
Quarter: 2006Q3

REPORT INFORMATION
  Report Type: 
  Country: None (occurrence: None)
  Receive Date: 20060901
  Receipt Date: 20060815
  Transmission Date: 20061208
  Serious: Yes (Other)
  Sender: FDA-Public Use
  Company Number: US200608003305

PATIENT
  Sex: Female

DRUGS (4)
  1. EVISTA (RALOXIFENE HYDROCHLORIDE) TABET [Suspect]
     Indication: OSTEOPOROSIS
     Dosage: 60 MG ORAL
     Route: 048
  2. FOSAMAX [Concomitant]
  3. CALCIUM GLUCONATE [Concomitant]
  4. VITAMIN D [Concomitant]

REACTIONS (5)
  - BONE DENSITY DECREASED [None]
  - CHOLELITHIASIS [None]
  - INTERVERTEBRAL DISC PROTRUSION [None]
  - PARAESTHESIA [None]
  - RESORPTION BONE INCREASED [None]
